FAERS Safety Report 8214170-0 (Version None)
Quarter: 2012Q1

REPORT INFORMATION
  Report Type: 
  Country: None (occurrence: None)
  Receive Date: 20120315
  Receipt Date: 20120315
  Transmission Date: 20120608
  Serious: Yes (Other)
  Sender: FDA-Public Use
  Company Number: None

PATIENT
  Sex: Male

DRUGS (1)
  1. ZYTIGA [Suspect]
     Dosage: 1000 2 MG QD PO
     Route: 048
     Dates: start: 20120209

REACTIONS (2)
  - GASTRIC DISORDER [None]
  - DEHYDRATION [None]
